FAERS Safety Report 26061731 (Version 1)
Quarter: 2025Q4

REPORT INFORMATION
  Report Type: Spontaneous
  Country: US (occurrence: US)
  Receive Date: 20251118
  Receipt Date: 20251118
  Transmission Date: 20260118
  Serious: No
  Sender: SYNDAX
  Company Number: US-SYNDAX PHARMACEUTICALS, INC.-2025US000895

PATIENT
  Age: 3 Year
  Sex: Male

DRUGS (1)
  1. REVUFORJ [Suspect]
     Active Substance: REVUMENIB CITRATE
     Indication: Acute myeloid leukaemia refractory
     Dosage: 110 MILLIGRAM
     Route: 048

REACTIONS (1)
  - Wrong technique in product usage process [Unknown]
